FAERS Safety Report 8824082 (Version 3)
Quarter: 2012Q4

REPORT INFORMATION
  Report Type: 
  Country: JP (occurrence: JP)
  Receive Date: 20121003
  Receipt Date: 20121127
  Transmission Date: 20130627
  Serious: Yes (Death, Hospitalization)
  Sender: FDA-Public Use
  Company Number: JP-009507513-1209JPN009637

PATIENT
  Age: 65 Year
  Sex: Female

DRUGS (76)
  1. ZOLINZA CAPSULES 100MG [Suspect]
     Indication: MYCOSIS FUNGOIDES
     Dosage: 300 mg, qd
     Route: 048
     Dates: start: 20120717, end: 20120719
  2. ZOLINZA CAPSULES 100MG [Suspect]
     Dosage: 200 mg, qd
     Route: 048
     Dates: start: 20120723, end: 20120727
  3. ZOLINZA CAPSULES 100MG [Suspect]
     Dosage: 200 mg, qd
     Dates: start: 20120729, end: 20120729
  4. DENOSINE [Suspect]
     Dosage: daily dosage unknown
     Route: 041
     Dates: start: 20120719, end: 20120719
  5. DENOSINE [Suspect]
     Dosage: daily dosage unknown
     Route: 041
     Dates: start: 20120703, end: 20120704
  6. DENOSINE [Suspect]
     Dosage: daily dosage unknown
     Route: 041
     Dates: start: 20120705, end: 20120713
  7. DENOSINE [Suspect]
     Dosage: daily dosage unknown
     Route: 041
     Dates: start: 20120715, end: 20120715
  8. DENOSINE [Suspect]
     Dosage: daily dosage unknown
     Route: 041
     Dates: start: 20120717, end: 20120717
  9. DENOSINE [Suspect]
     Dosage: daily dosage unknown
     Route: 041
     Dates: start: 20120725, end: 20120725
  10. DENOSINE [Suspect]
     Dosage: daily dosage unknown
     Route: 041
     Dates: start: 20120731, end: 20120731
  11. DENOSINE [Suspect]
     Dosage: daily dosage unknown
     Route: 041
     Dates: start: 20120801, end: 20120801
  12. DENOSINE [Suspect]
     Dosage: daily dosage unknown
     Route: 041
     Dates: start: 20120803, end: 20120803
  13. DENOSINE [Suspect]
     Dosage: daily dosage unknown
     Route: 041
     Dates: start: 20120805, end: 20120805
  14. DENOSINE [Suspect]
     Dosage: daily dosage unknown
     Route: 041
     Dates: start: 20120807, end: 20120807
  15. DENOSINE [Suspect]
     Dosage: daily dosage unknown
     Route: 041
     Dates: start: 20120809, end: 20120809
  16. PREDNISOLONE [Concomitant]
     Indication: MYCOSIS FUNGOIDES
     Dosage: 20 mg, qd
     Route: 048
     Dates: end: 20120730
  17. PREDNISOLONE [Concomitant]
     Dosage: daily dosage unknown
     Route: 048
     Dates: start: 20120711, end: 20120730
  18. BFLUID [Concomitant]
     Dosage: daily dosage unknown
     Route: 041
     Dates: start: 20120701, end: 20120706
  19. SOLDACTONE [Concomitant]
     Dosage: daily dosage unknown
     Route: 042
     Dates: start: 20120701, end: 20120706
  20. SOLDACTONE [Concomitant]
     Dosage: daily dosage unknown
     Route: 041
     Dates: start: 20120707, end: 20120808
  21. ISOTONIC SODIUM CHLORIDE SOLUTION PL FUSO [Concomitant]
     Dosage: daily dosage unknown
     Route: 042
     Dates: start: 20120701, end: 20120706
  22. ISOTONIC SODIUM CHLORIDE SOLUTION PL FUSO [Concomitant]
     Dosage: daily dosage unknown
     Route: 042
     Dates: start: 20120716, end: 20120716
  23. ISOTONIC SODIUM CHLORIDE SOLUTION PL FUSO [Concomitant]
     Dosage: daily dosage unknown
     Route: 041
     Dates: start: 20120701, end: 20120708
  24. ISOTONIC SODIUM CHLORIDE SOLUTION PL FUSO [Concomitant]
     Dosage: daily dosage unknown
     Route: 041
     Dates: start: 20120720, end: 20120810
  25. ISOTONIC SODIUM CHLORIDE SOLUTION PL FUSO [Concomitant]
     Dosage: daily dosage unknown
     Route: 041
     Dates: start: 20120701, end: 20120810
  26. ISOTONIC SODIUM CHLORIDE SOLUTION PL FUSO [Concomitant]
     Dosage: daily dosage unknown
     Route: 042
     Dates: start: 20120703, end: 20120720
  27. ISOTONIC SODIUM CHLORIDE SOLUTION PL FUSO [Concomitant]
     Dosage: daily dosage unknown
     Route: 042
  28. NEOPHAGEN INJECTION [Concomitant]
     Dosage: daily dosage unknown
     Route: 042
     Dates: start: 20120701, end: 20120706
  29. FINIBAX [Concomitant]
     Dosage: daily dosage unknown
     Route: 041
     Dates: start: 20120701, end: 20120708
  30. TEICOPLANIN [Concomitant]
     Dosage: daily dosage unknown
     Route: 041
     Dates: start: 20120701, end: 20120708
  31. SOLU-CORTEF [Concomitant]
     Dosage: daily dosage unknown
     Route: 041
     Dates: start: 20120706, end: 20120706
  32. SOLU-CORTEF [Concomitant]
     Dosage: daily dosage unknown
     Route: 041
     Dates: start: 20120710, end: 20120710
  33. SOLU-CORTEF [Concomitant]
     Dosage: daily dosage unknown
     Route: 041
     Dates: start: 20120712, end: 20120712
  34. SOLU-CORTEF [Concomitant]
     Dosage: daily dosage unknown
     Route: 041
     Dates: start: 20120714, end: 20120721
  35. PRIMPERAN [Concomitant]
     Dosage: daily dosage unknown
     Route: 041
     Dates: start: 20120707, end: 20120707
  36. HEPAFLUSH [Concomitant]
     Dosage: UNK
     Route: 041
     Dates: start: 20120701, end: 20120715
  37. HEPAFLUSH [Concomitant]
     Dosage: UNK
     Route: 041
     Dates: start: 20120717, end: 20120810
  38. HEPAFLUSH [Concomitant]
     Dosage: UNK
     Route: 042
     Dates: start: 20120706, end: 20120706
  39. HEPAFLUSH [Concomitant]
     Dosage: UNK
     Route: 042
     Dates: start: 20120712, end: 20120712
  40. HEPAFLUSH [Concomitant]
     Dosage: UNK
     Route: 042
     Dates: start: 20120716, end: 20120716
  41. ASPARA K [Concomitant]
     Dosage: daily dosage unknown
     Route: 041
     Dates: start: 20120703, end: 20120706
  42. ASPARA K [Concomitant]
     Dosage: daily dosage unknown
     Route: 041
     Dates: start: 20120710, end: 20120809
  43. WATER, STERILE [Concomitant]
     Dosage: daily dosage unknown
     Route: 041
     Dates: start: 20120703, end: 20120704
  44. WATER, STERILE [Concomitant]
     Dosage: daily dosage unknown
     Route: 041
     Dates: start: 20120705, end: 20120713
  45. WATER, STERILE [Concomitant]
     Dosage: daily dosage unknown
     Route: 041
     Dates: start: 20120715, end: 20120715
  46. WATER, STERILE [Concomitant]
     Dosage: daily dosage unknown
     Route: 041
     Dates: start: 20120717, end: 20120717
  47. WATER, STERILE [Concomitant]
     Dosage: daily dosage unknown
     Route: 041
     Dates: start: 20120719, end: 20120719
  48. WATER, STERILE [Concomitant]
     Dosage: daily dosage unknown
     Route: 041
     Dates: start: 20120703, end: 20120720
  49. FULCALIQ [Concomitant]
     Dosage: UNK
     Route: 041
     Dates: start: 20120707, end: 20120709
  50. FULCALIQ [Concomitant]
     Dosage: UNK
     Route: 041
     Dates: start: 20120710, end: 20120809
  51. WYSTAL [Concomitant]
     Dosage: daily dosage unknown
     Route: 041
     Dates: start: 20120709, end: 20120720
  52. AMIPAREN [Concomitant]
     Dosage: daily dosage unknown
     Route: 041
     Dates: start: 20120712, end: 20120808
  53. SEFIROM [Concomitant]
     Dosage: daily dosage unknown
     Route: 041
     Dates: start: 20120720, end: 20120809
  54. CALONAL [Concomitant]
     Dosage: daily dosage unknown
     Route: 048
     Dates: start: 20120701, end: 20120704
  55. DOGMATYL [Concomitant]
     Dosage: UNK
     Route: 048
     Dates: start: 20120703, end: 20120723
  56. NAIXAN [Concomitant]
     Dosage: daily dosage unknown
     Route: 048
     Dates: start: 20120704, end: 20120713
  57. NAIXAN [Concomitant]
     Dosage: daily dosage unknown
     Route: 048
     Dates: start: 20120706, end: 20120712
  58. NAIXAN [Concomitant]
     Dosage: daily dosage unknown
     Route: 048
     Dates: start: 20120714, end: 20120803
  59. REFLEX (MIRTAZAPINE) [Concomitant]
     Dosage: daily dosage unknown
     Route: 048
     Dates: start: 20120706, end: 20120726
  60. BAKTAR [Concomitant]
     Dosage: UNK
     Route: 048
     Dates: start: 20120711, end: 20120730
  61. ALLELOCK [Concomitant]
     Dosage: daily dosage unknown
     Route: 048
     Dates: start: 20120711, end: 20120724
  62. PRAVASTATIN SODIUM [Concomitant]
     Dosage: UNK
     Route: 048
     Dates: start: 20120711, end: 20120730
  63. OMEPRAZOLE [Concomitant]
     Dosage: daily dosage unknown
     Dates: start: 20120711, end: 20120730
  64. CINAL [Concomitant]
     Dosage: daily dosage unknown
     Route: 048
     Dates: start: 20120711, end: 20120724
  65. MYSLEE [Concomitant]
     Dosage: daily dosage unknown
     Route: 048
     Dates: start: 20120711, end: 20120730
  66. FOSAMAC TABLETS 35MG [Concomitant]
     Dosage: UNK
     Route: 048
     Dates: start: 20120711, end: 20120712
  67. LINAGLIPTIN [Concomitant]
     Dosage: UNK
     Route: 048
     Dates: start: 20120711, end: 20120730
  68. ZOFRAN ZYDIS [Concomitant]
     Dosage: UNK
     Route: 048
     Dates: start: 20120712, end: 20120718
  69. AZUNOL (GUAIAZULENE) [Concomitant]
     Dosage: daily dosage unknown
     Route: 061
     Dates: start: 20120713, end: 20120713
  70. ADALAT [Concomitant]
     Dosage: UNK
     Route: 048
     Dates: start: 20120716, end: 20120716
  71. NIFEDIPINE [Concomitant]
     Dosage: daily dosage unknown
     Route: 048
     Dates: start: 20120717, end: 20120717
  72. NIFEDIPINE [Concomitant]
     Dosage: daily dosage unknown
     Route: 048
     Dates: start: 20120718, end: 20120730
  73. FUNGIZONE [Concomitant]
     Dosage: daily dosage unknown
     Route: 048
     Dates: start: 20120717, end: 20120724
  74. NERISONA [Concomitant]
     Dosage: UNK
     Route: 061
     Dates: start: 20120718, end: 20120718
  75. LOXOPROFEN [Concomitant]
     Dosage: uncertain dosage
     Route: 048
     Dates: start: 20120704, end: 20120704
  76. BIOFERMIN [Concomitant]
     Dosage: daily dosage unknown
     Route: 048
     Dates: start: 20120703, end: 20120716

REACTIONS (3)
  - Platelet count decreased [Recovering/Resolving]
  - Mycosis fungoides [Fatal]
  - Platelet count decreased [Recovering/Resolving]
